FAERS Safety Report 22335618 (Version 3)
Quarter: 2023Q2

REPORT INFORMATION
  Report Type: Report from Study
  Country: US (occurrence: US)
  Receive Date: 20230518
  Receipt Date: 20230620
  Transmission Date: 20230722
  Serious: Yes (Hospitalization)
  Sender: FDA-Public Use
  Company Number: US-ABBVIE-4770194

PATIENT
  Age: 52 Year
  Sex: Male

DRUGS (2)
  1. HUMIRA [Suspect]
     Active Substance: ADALIMUMAB
     Indication: Crohn^s disease
     Route: 030
     Dates: start: 20210514
  2. HUMIRA [Suspect]
     Active Substance: ADALIMUMAB
     Indication: Rheumatoid arthritis
     Route: 058
     Dates: start: 20220221

REACTIONS (11)
  - Small intestinal obstruction [Recovered/Resolved]
  - Abdominal pain upper [Unknown]
  - Fatigue [Recovered/Resolved]
  - Asthenia [Recovered/Resolved]
  - Condition aggravated [Recovered/Resolved]
  - Dizziness [Recovered/Resolved]
  - Arthralgia [Unknown]
  - Haematochezia [Recovered/Resolved]
  - Arthropathy [Not Recovered/Not Resolved]
  - Haematochezia [Unknown]
  - Fatigue [Unknown]

NARRATIVE: CASE EVENT DATE: 20220422
